FAERS Safety Report 19711800 (Version 1)
Quarter: 2021Q3

REPORT INFORMATION
  Report Type: Spontaneous
  Country: JP (occurrence: JP)
  Receive Date: 20210817
  Receipt Date: 20210817
  Transmission Date: 20211014
  Serious: No
  Sender: FDA-Public Use
  Company Number: JP-LUPIN PHARMACEUTICALS INC.-2021-14842

PATIENT
  Age: 72 Year
  Sex: Male

DRUGS (3)
  1. MORPHINE [Suspect]
     Active Substance: MORPHINE
     Dosage: 90 MILLIGRAM, QD
     Route: 048
  2. MORPHINE [Suspect]
     Active Substance: MORPHINE
     Dosage: 120 MILLIGRAM, QD
     Route: 048
  3. MORPHINE [Suspect]
     Active Substance: MORPHINE
     Indication: CANCER PAIN
     Dosage: UNK
     Route: 048

REACTIONS (1)
  - Somnolence [Recovered/Resolved]
